FAERS Safety Report 4705082-5 (Version None)
Quarter: 2005Q3

REPORT INFORMATION
  Report Type: 
  Country: None (occurrence: None)
  Receive Date: 20050701
  Receipt Date: 20050621
  Transmission Date: 20060218
  Serious: Yes (Death, Hospitalization)
  Sender: FDA-Public Use
  Company Number: JP-SANOFI-SYNTHELABO-A01200504338

PATIENT
  Age: 68 Year
  Sex: Female

DRUGS (7)
  1. KAYEXALATE [Suspect]
     Indication: HYPERKALAEMIA
     Dosage: UNK
     Route: 048
     Dates: end: 20031001
  2. KALIMATE [Suspect]
     Indication: HYPERKALAEMIA
     Dosage: UNK
     Route: 048
     Dates: end: 20031009
  3. CRAVIT [Concomitant]
     Indication: ABDOMINAL PAIN
     Dosage: UNK
     Route: 065
     Dates: start: 20031007, end: 20031009
  4. PURSENNID [Concomitant]
     Indication: CONSTIPATION
     Dosage: UNK
     Route: 065
  5. LOXONIN [Concomitant]
     Indication: BACK PAIN
     Dosage: UNK
     Route: 065
     Dates: end: 20031206
  6. LOXONIN [Concomitant]
     Indication: ARTHRALGIA
     Dosage: UNK
     Route: 065
     Dates: end: 20031206
  7. D-SORBITOL [Concomitant]
     Dosage: UNK
     Route: 065

REACTIONS (3)
  - LARGE INTESTINE PERFORATION [None]
  - MELAENA [None]
  - PERITONITIS [None]
